FAERS Safety Report 4677349-0 (Version None)
Quarter: 2005Q2

REPORT INFORMATION
  Report Type: 
  Country: None (occurrence: None)
  Receive Date: 20050526
  Receipt Date: 20050520
  Transmission Date: 20051028
  Serious: Yes (Hospitalization)
  Sender: FDA-Public Use
  Company Number: NLWYE684923MAY05

PATIENT
  Age: 26 Year
  Sex: Male

DRUGS (1)
  1. EFFEXOR [Suspect]
     Dosage: ORAL
     Route: 048

REACTIONS (1)
  - CARDIOMYOPATHY [None]
